FAERS Safety Report 4606263-1 (Version None)
Quarter: 2005Q2

REPORT INFORMATION
  Report Type: 
  Country: None (occurrence: None)
  Receive Date: 20050303
  Receipt Date: 20041213
  Transmission Date: 20051028
  Serious: No
  Sender: FDA-Public Use
  Company Number: 200421159BWH

PATIENT
  Sex: Male

DRUGS (1)
  1. LEVITRA [Suspect]
     Dosage: 2 MG, ORAL
     Route: 048

REACTIONS (3)
  - ANORGASMIA [None]
  - DRUG EFFECT PROLONGED [None]
  - EJACULATION DISORDER [None]
